FAERS Safety Report 5084650-8 (Version None)
Quarter: 2006Q3

REPORT INFORMATION
  Report Type: 
  Country: None (occurrence: None)
  Receive Date: 20060821
  Receipt Date: 20060809
  Transmission Date: 20061208
  Serious: Yes (Other)
  Sender: FDA-Public Use
  Company Number: IE-ROCHE-458866

PATIENT
  Age: 34 Year
  Sex: Female

DRUGS (1)
  1. ROCEPHIN [Suspect]
     Indication: DRUG USE FOR UNKNOWN INDICATION
     Dosage: FORM REPORTED AS POWDER FOR SOLUTION FOR INJECTION.
     Route: 042

REACTIONS (7)
  - ANXIETY [None]
  - BONE PAIN [None]
  - HEADACHE [None]
  - MALAISE [None]
  - PARAESTHESIA [None]
  - PHOTOPHOBIA [None]
  - RASH ERYTHEMATOUS [None]
